FAERS Safety Report 6918919-6 (Version None)
Quarter: 2010Q3

REPORT INFORMATION
  Report Type: 
  Country: None (occurrence: None)
  Receive Date: 20100723
  Receipt Date: 20100518
  Transmission Date: 20110219
  Serious: Yes (Other)
  Sender: FDA-Public Use
  Company Number: 2010062244

PATIENT
  Age: 39 Year
  Sex: Female

DRUGS (4)
  1. DEPO-MEDROL [Suspect]
  2. PHENERGAN [Suspect]
  3. TORADOL [Suspect]
  4. TOCILIZUMAB (ANTI-INTERLEUKIN 6) [Suspect]

REACTIONS (4)
  - ERYTHEMA [None]
  - FLUID RETENTION [None]
  - HEADACHE [None]
  - PRURITUS [None]
